FAERS Safety Report 12808302 (Version 2)
Quarter: 2016Q4

REPORT INFORMATION
  Report Type: Report from Study
  Country: US (occurrence: US)
  Receive Date: 20161004
  Receipt Date: 20161201
  Transmission Date: 20170207
  Serious: Yes (Other)
  Sender: FDA-Public Use
  Company Number: US-GILEAD-2016-0229835

PATIENT
  Age: 64 Year
  Sex: Female

DRUGS (13)
  1. LOSARTAN. [Concomitant]
     Active Substance: LOSARTAN
  2. AMBRISENTAN [Suspect]
     Active Substance: AMBRISENTAN
     Indication: SYSTEMIC LUPUS ERYTHEMATOSUS
     Dosage: 5 MG, QD
     Route: 065
     Dates: start: 20160812
  3. FAMOTIDINE. [Concomitant]
     Active Substance: FAMOTIDINE
  4. POTASSIUM [Concomitant]
     Active Substance: POTASSIUM
  5. COUMADIN [Concomitant]
     Active Substance: WARFARIN SODIUM
  6. ACTONEL [Concomitant]
     Active Substance: RISEDRONATE SODIUM
  7. VITAMIN C [Concomitant]
     Active Substance: ASCORBIC ACID
  8. PLAQUENIL                          /00072602/ [Concomitant]
     Active Substance: HYDROXYCHLOROQUINE DIPHOSPHATE
  9. AMBRISENTAN [Suspect]
     Active Substance: AMBRISENTAN
     Indication: PULMONARY HYPERTENSION
     Dosage: 10 MG, QD
     Route: 065
     Dates: start: 20160712, end: 20160812
  10. OSCAL D [Concomitant]
     Active Substance: CALCIUM CARBONATE\CHOLECALCIFEROL
  11. SILDENAFIL. [Suspect]
     Active Substance: SILDENAFIL
     Indication: PULMONARY HYPERTENSION
     Dosage: 20 MG, TID
     Route: 065
     Dates: start: 20160120
  12. LATANOPROST. [Concomitant]
     Active Substance: LATANOPROST
  13. OXYGEN. [Concomitant]
     Active Substance: OXYGEN

REACTIONS (10)
  - Systemic lupus erythematosus [Unknown]
  - Anaemia [Unknown]
  - Hepatic enzyme increased [Unknown]
  - Nasal congestion [Unknown]
  - Cardiac discomfort [Unknown]
  - Osteoporosis [Unknown]
  - Apparent death [Unknown]
  - Oxygen consumption [Unknown]
  - Headache [Recovered/Resolved]
  - Unevaluable event [Unknown]

NARRATIVE: CASE EVENT DATE: 20160701
